FAERS Safety Report 6297223-6 (Version None)
Quarter: 2009Q3

REPORT INFORMATION
  Report Type: 
  Country: None (occurrence: None)
  Receive Date: 20090804
  Receipt Date: 20090804
  Transmission Date: 20100115
  Serious: Yes (Hospitalization)
  Sender: FDA-Public Use
  Company Number: None

PATIENT
  Age: 53 Year
  Sex: Female
  Weight: 47.6277 kg

DRUGS (2)
  1. NITROFURANTOIN MONOHYDRATE/MACROCRYSTALS [Suspect]
     Indication: URINARY TRACT INFECTION
     Dosage: 100 MG TWICE A DAY
     Dates: start: 20090307, end: 20090310
  2. NITROFURANTOIN MONOHYDRATE/MACROCRYSTALS [Suspect]
     Indication: URINARY TRACT INFECTION
     Dosage: 100 MG 1 PILL AT BEDTIME
     Dates: start: 20090701

REACTIONS (6)
  - CHILLS [None]
  - DRUG HYPERSENSITIVITY [None]
  - HEADACHE [None]
  - MYALGIA [None]
  - NAUSEA [None]
  - WHEEZING [None]
